FAERS Safety Report 6106202-0 (Version None)
Quarter: 2009Q1

REPORT INFORMATION
  Report Type: 
  Country: None (occurrence: None)
  Receive Date: 20090306
  Receipt Date: 20090226
  Transmission Date: 20090719
  Serious: Yes (Hospitalization, Other)
  Sender: FDA-Public Use
  Company Number: US-ELI_LILLY_AND_COMPANY-US200901004580

PATIENT
  Age: 65 Year
  Sex: Female

DRUGS (1)
  1. CYMBALTA [Suspect]
     Indication: PAIN
     Route: 048

REACTIONS (3)
  - ADRENAL NEOPLASM [None]
  - DIABETES MELLITUS INADEQUATE CONTROL [None]
  - HEPATIC CANCER METASTATIC [None]
